FAERS Safety Report 7573059-0 (Version None)
Quarter: 2011Q2

REPORT INFORMATION
  Report Type: 
  Country: None (occurrence: None)
  Receive Date: 20110525
  Receipt Date: 20110323
  Transmission Date: 20111010
  Serious: Yes (Hospitalization)
  Sender: FDA-Public Use
  Company Number: 325484

PATIENT
  Age: 63 Year
  Sex: Female
  Weight: 120.6 kg

DRUGS (4)
  1. METFORMIN HCL [Concomitant]
  2. VICTOZA [Suspect]
     Indication: TYPE 2 DIABETES MELLITUS
     Dosage: 1.8 MG, QD, SUBCUTANEOUS
     Route: 058
     Dates: start: 20100501, end: 20110317
  3. MILNACIPRAN HYDROCHLORIDE [Suspect]
     Indication: FIBROMYALGIA
     Dates: start: 20110221, end: 20110317
  4. HYDROCHLOROTHIAZIDE [Concomitant]

REACTIONS (1)
  - PANCREATITIS [None]
